FAERS Safety Report 9062106 (Version 2)
Quarter: 2013Q1

REPORT INFORMATION
  Report Type: Spontaneous
  Country: US (occurrence: US)
  Receive Date: 20130129
  Receipt Date: 20130214
  Transmission Date: 20140127
  Serious: Yes (Other)
  Sender: FDA-Public Use
  Company Number: PHEH2013US001968

PATIENT
  Sex: Female

DRUGS (13)
  1. DIOVAN [Suspect]
     Dosage: 320 MG, UNK
  2. DIOVAN HCT [Suspect]
     Dosage: UNK UKN, UNK
  3. LASIX [Concomitant]
     Dosage: UNK UKN, UNK
  4. FLUOXETINE [Concomitant]
     Dosage: UNK UKN, UNK
  5. POTASSIUM CHLORIDE [Concomitant]
     Dosage: UNK UKN, UNK
  6. METFORMIN [Concomitant]
     Dosage: UNK UKN, UNK
  7. GLIMEPIRIDE [Concomitant]
     Dosage: UNK UKN, UNK
  8. METOPROLOL [Concomitant]
     Dosage: UNK UKN, UNK
  9. AMLODIPINE [Concomitant]
     Dosage: UNK UKN, UNK
  10. ISOSORBIDE [Concomitant]
     Dosage: UNK UKN, UNK
  11. VITAMIN B [Concomitant]
     Dosage: UNK UKN, UNK
  12. COLCRYS [Concomitant]
     Dosage: UNK UKN, UNK
  13. ALLOPURINOL [Concomitant]
     Dosage: UNK UKN, UNK

REACTIONS (3)
  - Macular degeneration [Unknown]
  - Atrioventricular block [Unknown]
  - Gait disturbance [Unknown]
